FAERS Safety Report 6069421-8 (Version None)
Quarter: 2009Q1

REPORT INFORMATION
  Report Type: 
  Country: None (occurrence: None)
  Receive Date: 20090206
  Receipt Date: 20090129
  Transmission Date: 20090719
  Serious: Yes (Other)
  Sender: FDA-Public Use
  Company Number: US-PFIZER INC-2009162695

PATIENT
  Sex: Male
  Weight: 108.84 kg

DRUGS (6)
  1. DILANTIN-125 [Suspect]
     Indication: GRAND MAL CONVULSION
     Dosage: 460 MG, 1X/DAY
     Dates: start: 19740101
  2. PHENOBARBITAL [Concomitant]
     Dosage: UNK
  3. HYDROCHLOROTHIAZIDE [Concomitant]
     Dosage: 25 MG, 1X/DAY
  4. DIOVAN [Concomitant]
     Dosage: 160 MG, 1X/DAY
  5. FLOMAX [Concomitant]
     Dosage: 0.4 MG
  6. IBANDRONATE SODIUM [Concomitant]
     Dosage: 150 MG, MONTHLY

REACTIONS (2)
  - DEEP VEIN THROMBOSIS [None]
  - PETIT MAL EPILEPSY [None]
